FAERS Safety Report 6713460-8 (Version None)
Quarter: 2010Q2

REPORT INFORMATION
  Report Type: 
  Country: None (occurrence: None)
  Receive Date: 20100502
  Receipt Date: 20100421
  Transmission Date: 20101027
  Serious: Yes (Other)
  Sender: FDA-Public Use
  Company Number: 1000013207

PATIENT
  Age: 24 Year
  Sex: Male
  Weight: 75 kg

DRUGS (2)
  1. ESCITALOPRAM (ESCITALOPRAM OXALATE) (10 MILLIGRAM, TABLETS) [Suspect]
     Indication: DEPRESSION
     Dosage: 30 MG (30 MG, 1 IN 1 D), ORAL
     Route: 048
     Dates: start: 20091221, end: 20100125
  2. SEROQUEL [Concomitant]

REACTIONS (4)
  - OFF LABEL USE [None]
  - OVERDOSE [None]
  - POLYDIPSIA [None]
  - POLYURIA [None]
